FAERS Safety Report 17976070 (Version 1)
Quarter: 2020Q3

REPORT INFORMATION
  Report Type: Spontaneous
  Country: GB (occurrence: GB)
  Receive Date: 20200702
  Receipt Date: 20200702
  Transmission Date: 20201103
  Serious: Yes (Other)
  Sender: FDA-Public Use
  Company Number: GB-PFIZER INC-2020251163

PATIENT
  Age: 58 Year
  Sex: Male
  Weight: 107 kg

DRUGS (5)
  1. MACROGOL [Concomitant]
     Active Substance: POLYETHYLENE GLYCOLS
     Dosage: UNK
  2. CHLORPHENAMINE [Concomitant]
     Active Substance: CHLORPHENIRAMINE MALEATE
     Dosage: UNK
  3. PREGABALIN. [Suspect]
     Active Substance: PREGABALIN
     Indication: PAIN
     Dosage: UNK
  4. PREGABALIN. [Suspect]
     Active Substance: PREGABALIN
     Dosage: 450 MG, 1X/DAY (300MG IN THE MORNING AND 150MG IN THE EVENING)
     Route: 048
     Dates: start: 20200611
  5. BUSCOPAN [Concomitant]
     Active Substance: BUTYLSCOPOLAMINE BROMIDE
     Dosage: UNK

REACTIONS (3)
  - Platelet count decreased [Unknown]
  - Haemoglobin decreased [Unknown]
  - Agitation [Unknown]

NARRATIVE: CASE EVENT DATE: 20200611
